FAERS Safety Report 5682850-7 (Version None)
Quarter: 2008Q1

REPORT INFORMATION
  Report Type: 
  Country: None (occurrence: None)
  Receive Date: 20080327
  Receipt Date: 20080325
  Transmission Date: 20080703
  Serious: Yes (Hospitalization, Disabling)
  Sender: FDA-Public Use
  Company Number: B0509326A

PATIENT
  Age: 59 Year
  Sex: Male
  Weight: 59 kg

DRUGS (6)
  1. ARIXTRA [Suspect]
     Indication: THROMBOSIS PROPHYLAXIS
     Dosage: 2.5MG PER DAY
     Route: 058
     Dates: start: 20080211, end: 20080219
  2. RHEUMATREX [Concomitant]
     Indication: RHEUMATOID ARTHRITIS
     Route: 048
  3. AZULFIDINE EN-TABS [Concomitant]
     Indication: RHEUMATOID ARTHRITIS
     Dosage: 500MG PER DAY
     Route: 048
  4. PROGRAF [Concomitant]
     Indication: RHEUMATOID ARTHRITIS
     Route: 048
  5. PREDONINE [Concomitant]
     Indication: RHEUMATOID ARTHRITIS
     Dosage: 10MG PER DAY
     Route: 048
  6. HEPARIN [Concomitant]
     Dosage: 5000IU24 PER DAY
     Route: 042
     Dates: start: 20080208, end: 20080211

REACTIONS (6)
  - HAEMOGLOBIN DECREASED [None]
  - HAEMORRHAGE SUBCUTANEOUS [None]
  - PAIN [None]
  - PLATELET COUNT INCREASED [None]
  - RED BLOOD CELL COUNT DECREASED [None]
  - WHITE BLOOD CELL COUNT INCREASED [None]
